FAERS Safety Report 7288442-0 (Version None)
Quarter: 2011Q1

REPORT INFORMATION
  Report Type: 
  Country: None (occurrence: None)
  Receive Date: 20110211
  Receipt Date: 20110207
  Transmission Date: 20110831
  Serious: Yes (Hospitalization)
  Sender: FDA-Public Use
  Company Number: A0912889A

PATIENT
  Age: 56 Year
  Sex: Male
  Weight: 184.2 kg

DRUGS (3)
  1. ZOCOR [Concomitant]
  2. AVANDIA [Suspect]
     Indication: DIABETES MELLITUS
     Dosage: 8MG PER DAY
     Route: 048
     Dates: start: 20000101, end: 20070101
  3. METFORMIN HCL [Concomitant]

REACTIONS (5)
  - ADVERSE EVENT [None]
  - DYSPNOEA [None]
  - FIBRIN D DIMER INCREASED [None]
  - MYOGLOBIN BLOOD INCREASED [None]
  - OEDEMA [None]
